FAERS Safety Report 5875187-4 (Version None)
Quarter: 2008Q3

REPORT INFORMATION
  Report Type: 
  Country: None (occurrence: None)
  Receive Date: 20080909
  Receipt Date: 20080609
  Transmission Date: 20090109
  Serious: No
  Sender: FDA-Public Use
  Company Number: A0731977A

PATIENT
  Age: 56 Year
  Sex: Female

DRUGS (4)
  1. ALBENZA [Suspect]
     Indication: INFECTION PARASITIC
     Dosage: 400MG THREE TIMES PER DAY
     Route: 048
     Dates: start: 20080602
  2. PRAZIQUANTEL [Concomitant]
  3. DUONEB [Concomitant]
  4. BECLOMETHASONE DIPROPIONATE [Concomitant]

REACTIONS (4)
  - DRUG INTERACTION [None]
  - NAUSEA [None]
  - OVERDOSE [None]
  - VOMITING [None]
